FAERS Safety Report 9527526 (Version 1)
Quarter: 2013Q3

REPORT INFORMATION
  Report Type: Spontaneous
  Country: US (occurrence: US)
  Receive Date: 20130917
  Receipt Date: 20130917
  Transmission Date: 20140515
  Serious: Yes (Other)
  Sender: FDA-Public Use
  Company Number: US-ASTRAZENECA-2013SE68419

PATIENT
  Age: 75 Year
  Sex: Female
  Weight: 73.5 kg

DRUGS (7)
  1. ATACAND [Suspect]
     Indication: BLOOD PRESSURE ABNORMAL
     Route: 048
  2. ATACAND HCT [Suspect]
     Indication: BLOOD PRESSURE ABNORMAL
     Dosage: 16/12.5 MG DAILY
     Route: 048
     Dates: start: 2013
  3. LISINOPRIL [Suspect]
     Indication: BLOOD PRESSURE ABNORMAL
     Route: 048
  4. UNSPECIFIED [Suspect]
     Route: 065
  5. CARVEDILOL [Concomitant]
     Indication: BLOOD PRESSURE ABNORMAL
  6. NORVASC [Concomitant]
     Indication: BLOOD PRESSURE ABNORMAL
  7. SYNTHROID [Concomitant]
     Indication: HYPOTHYROIDISM

REACTIONS (19)
  - Musculoskeletal disorder [Unknown]
  - Local swelling [Unknown]
  - Asthma [Unknown]
  - Body height decreased [Unknown]
  - Diarrhoea [Unknown]
  - Diarrhoea [Unknown]
  - Memory impairment [Unknown]
  - Local swelling [Unknown]
  - Asthenia [Unknown]
  - Carpal tunnel syndrome [Unknown]
  - Pain [Unknown]
  - Nervous system disorder [Unknown]
  - Activities of daily living impaired [Unknown]
  - Adverse event [Unknown]
  - Grief reaction [Unknown]
  - Feeling abnormal [Unknown]
  - Cough [Recovered/Resolved]
  - Drug ineffective [Unknown]
  - Drug dose omission [Unknown]
